FAERS Safety Report 5245931-8 (Version None)
Quarter: 2007Q1

REPORT INFORMATION
  Report Type: 
  Country: None (occurrence: None)
  Receive Date: 20070221
  Receipt Date: 20070210
  Transmission Date: 20070707
  Serious: Yes (Life-Threatening)
  Sender: FDA-Public Use
  Company Number: 2007SP002566

PATIENT
  Sex: Male

DRUGS (1)
  1. TEMODAL (TEMOZOLOMIDE) (TEMIZOLOMIDE) [Suspect]
     Indication: GLIOBLASTOMA MULTIFORME
     Dosage: PO
     Route: 048

REACTIONS (3)
  - ENCEPHALITIS [None]
  - PNEUMONIA [None]
  - RASH [None]
